FAERS Safety Report 6599164-3 (Version None)
Quarter: 2010Q1

REPORT INFORMATION
  Report Type: 
  Country: None (occurrence: None)
  Receive Date: 20100217
  Receipt Date: 20100127
  Transmission Date: 20100710
  Serious: Yes (Death, Hospitalization)
  Sender: FDA-Public Use
  Company Number: 2010AC000057

PATIENT
  Age: 69 Year
  Sex: Female

DRUGS (12)
  1. DIGOXIN [Suspect]
     Indication: ARRHYTHMIA
     Dosage: PO
     Route: 048
  2. LASIX [Concomitant]
  3. PAXIL [Concomitant]
  4. MAG OXIDE [Concomitant]
  5. NOVALEX [Concomitant]
  6. COUMADIN [Concomitant]
  7. TAMOXIPFEN [Concomitant]
  8. AMIODARONE HCL [Concomitant]
  9. LASIX [Concomitant]
  10. ASPIRIN [Concomitant]
  11. TAMOXIFEN CITRATE [Concomitant]
  12. PAXIL [Concomitant]

REACTIONS (22)
  - AGITATION [None]
  - ALCOHOLIC LIVER DISEASE [None]
  - AMMONIA INCREASED [None]
  - ANXIETY [None]
  - COLITIS [None]
  - COLONIC POLYP [None]
  - CYST [None]
  - DEPRESSED LEVEL OF CONSCIOUSNESS [None]
  - DIALYSIS [None]
  - DIVERTICULUM [None]
  - DRUG TOXICITY [None]
  - HAEMORRHOIDS [None]
  - HEPATIC CIRRHOSIS [None]
  - HEPATIC FAILURE [None]
  - HYPOTENSION [None]
  - NERVOUS SYSTEM DISORDER [None]
  - PLATELET COUNT DECREASED [None]
  - PLEURAL EFFUSION [None]
  - POST PROCEDURAL COMPLICATION [None]
  - SLUGGISHNESS [None]
  - SOMNOLENCE [None]
  - URINE OUTPUT DECREASED [None]
